FAERS Safety Report 5018732-3 (Version None)
Quarter: 2006Q2

REPORT INFORMATION
  Report Type: 
  Country: None (occurrence: None)
  Receive Date: 20060606
  Receipt Date: 20060525
  Transmission Date: 20061013
  Serious: Yes (Hospitalization)
  Sender: FDA-Public Use
  Company Number: CO-JNJFOC-20060505845

PATIENT
  Sex: Male
  Weight: 62 kg

DRUGS (7)
  1. REMICADE [Suspect]
     Route: 042
  2. REMICADE [Suspect]
     Route: 042
  3. REMICADE [Suspect]
     Indication: RHEUMATOID ARTHRITIS
     Dosage: TOTAL OF 3 INFUSIONS
     Route: 042
  4. SULFASALAZINE [Concomitant]
     Indication: RHEUMATOID ARTHRITIS
  5. METHOTREXATE [Concomitant]
     Indication: RHEUMATOID ARTHRITIS
  6. RANITIDINE [Concomitant]
     Indication: GASTRIC ULCER
  7. DICLOPHENAC [Concomitant]
     Indication: RHEUMATOID ARTHRITIS

REACTIONS (2)
  - PLEURAL EFFUSION [None]
  - TUBERCULOUS PLEURISY [None]
